FAERS Safety Report 4503945-7 (Version None)
Quarter: 2004Q3

REPORT INFORMATION
  Report Type: 
  Country: None (occurrence: None)
  Receive Date: 20040927
  Receipt Date: 20040720
  Transmission Date: 20050211
  Serious: No
  Sender: FDA-Public Use
  Company Number: USA040773130

PATIENT
  Age: 5 Year
  Sex: Male
  Weight: 27 kg

DRUGS (2)
  1. STRATTERA [Suspect]
     Indication: PSYCHOMOTOR HYPERACTIVITY
     Dosage: 25 MG
     Dates: start: 20040701
  2. ZOLOFT [Concomitant]

REACTIONS (2)
  - COORDINATION ABNORMAL [None]
  - EYE MOVEMENT DISORDER [None]
